FAERS Safety Report 6761843-2 (Version None)
Quarter: 2010Q2

REPORT INFORMATION
  Report Type: 
  Country: None (occurrence: None)
  Receive Date: 20100430
  Receipt Date: 20100421
  Transmission Date: 20101027
  Serious: Yes (Other)
  Sender: FDA-Public Use
  Company Number: AEUSA201000126

PATIENT
  Age: 39 Year
  Sex: Male
  Weight: 77 kg

DRUGS (1)
  1. GAMUNEX [Suspect]
     Indication: IMMUNODEFICIENCY COMMON VARIABLE
     Dosage: 900 MG/KG; QM; IV
     Route: 042
     Dates: start: 20040101

REACTIONS (1)
  - RENAL FAILURE ACUTE [None]
